FAERS Safety Report 6346759-8 (Version None)
Quarter: 2009Q3

REPORT INFORMATION
  Report Type: 
  Country: None (occurrence: None)
  Receive Date: 20090904
  Receipt Date: 20090825
  Transmission Date: 20100115
  Serious: Yes (Hospitalization)
  Sender: FDA-Public Use
  Company Number: 2009-02879

PATIENT
  Age: 74 Year
  Sex: Male
  Weight: 72 kg

DRUGS (8)
  1. VELCADE [Suspect]
     Indication: MULTIPLE MYELOMA
     Dosage: 2 MG, INTRAVENOUS
     Route: 042
     Dates: start: 20090624, end: 20090708
  2. LENALIDOMIDE(LENALIDOMIDE) CAPSULE [Suspect]
     Indication: MULTIPLE MYELOMA
     Dosage: 15 MG, ORAL; 10 MG
     Route: 048
     Dates: start: 20090624, end: 20090713
  3. DEXAMETHASONE TAB [Suspect]
     Indication: MULTIPLE MYELOMA
     Dosage: 20 MG, ORAL
     Route: 048
     Dates: start: 20090624, end: 20090709
  4. METOPROLOL TARTRATE [Concomitant]
  5. LANOXIN [Concomitant]
  6. ALFUZOSIN (ALFUZOSIN) [Concomitant]
  7. ATORVENT (IPRATROPIUM BROMIDE) [Concomitant]
  8. MAGNESIUM OXIDE (MAGNESIU OXIDE) [Concomitant]

REACTIONS (7)
  - ANAEMIA [None]
  - DIZZINESS [None]
  - DYSPNOEA [None]
  - HYPERVENTILATION [None]
  - ORTHOSTATIC HYPOTENSION [None]
  - RENAL DISORDER [None]
  - THROMBOCYTOPENIA [None]
